FAERS Safety Report 16677508 (Version 1)
Quarter: 2019Q3

REPORT INFORMATION
  Report Type: Spontaneous
  Country: US (occurrence: US)
  Receive Date: 20190806
  Receipt Date: 20190806
  Transmission Date: 20191007
  Serious: No
  Sender: FDA-Public Use
  Company Number: None

PATIENT
  Age: 66 Year
  Sex: Female
  Weight: 63 kg

DRUGS (1)
  1. ESTRADIOL VAGINAL CREAM, USP 0.01% PRODUCT OF GERMANY [Suspect]
     Active Substance: ESTRADIOL
     Indication: VAGINAL DYSPLASIA
     Dosage: ?          OTHER FREQUENCY:2 XS WK;?
     Route: 067
     Dates: start: 20190729, end: 20190729

REACTIONS (3)
  - Application site irritation [None]
  - Product substitution issue [None]
  - Application site pain [None]

NARRATIVE: CASE EVENT DATE: 20190729
